FAERS Safety Report 4804765-6 (Version None)
Quarter: 2005Q4

REPORT INFORMATION
  Report Type: 
  Country: None (occurrence: None)
  Receive Date: 20051017
  Receipt Date: 20050513
  Transmission Date: 20060501
  Serious: Yes (Hospitalization)
  Sender: FDA-Public Use
  Company Number: 805#1#2005-00044

PATIENT
  Age: 14 Day
  Sex: Male

DRUGS (7)
  1. ALPROSTADIL [Suspect]
     Indication: HEART DISEASE CONGENITAL
     Dosage: 13 NG/KG/MIN INTRAVENOUS DRIP
     Route: 041
     Dates: start: 20040921, end: 20040924
  2. ALPROSTADIL [Suspect]
     Indication: HEART DISEASE CONGENITAL
     Dosage: 13 NG/KG/MIN INTRAVENOUS DRIP
     Route: 041
     Dates: start: 20040924, end: 20041006
  3. CALCIUM GLUCONATE [Concomitant]
  4. FUROSEMIDE [Concomitant]
  5. POTASSIUM-CANRENOATE [Concomitant]
  6. SPIRONOLACTONE [Concomitant]
  7. FLOMOXEF SODIUM           (FLOMOXEF SODIUM) [Concomitant]

REACTIONS (2)
  - DRUG EFFECT DECREASED [None]
  - INFANTILE APNOEIC ATTACK [None]
